FAERS Safety Report 4597984-8 (Version None)
Quarter: 2005Q1

REPORT INFORMATION
  Report Type: 
  Country: None (occurrence: None)
  Receive Date: 20050209
  Receipt Date: 20040121
  Transmission Date: 20050727
  Serious: No
  Sender: FDA-Public Use
  Company Number: MK200401-0237-1

PATIENT
  Age: 82 Year
  Sex: Male

DRUGS (1)
  1. OXYCODONE HYDROCHLORIDE AND ACETAMINOPHEN [Suspect]
     Indication: SPINAL FRACTURE
     Dosage: 5MG/325MG PO QID; SEVERAL MONTHS
     Route: 048

REACTIONS (3)
  - DIPLOPIA [None]
  - HEADACHE [None]
  - VISUAL ACUITY REDUCED [None]
